FAERS Safety Report 15814675 (Version 2)
Quarter: 2019Q2

REPORT INFORMATION
  Report Type: Spontaneous
  Country: JP (occurrence: JP)
  Receive Date: 20190111
  Receipt Date: 20190627
  Transmission Date: 20190711
  Serious: Yes (Life-Threatening, Hospitalization, Other)
  Sender: FDA-Public Use
  Company Number: JP-ABBVIE-19K-087-2619925-00

PATIENT
  Sex: Female
  Weight: 42 kg

DRUGS (6)
  1. HUMIRA [Suspect]
     Active Substance: ADALIMUMAB
     Indication: BEHCET^S SYNDROME
     Route: 058
     Dates: start: 20180926, end: 20180926
  2. HUMIRA [Suspect]
     Active Substance: ADALIMUMAB
     Route: 058
     Dates: start: 20181003, end: 20181226
  3. METHOTREXATE. [Concomitant]
     Active Substance: METHOTREXATE
     Indication: UVEITIS
     Route: 048
     Dates: start: 20181128
  4. METHOTREXATE. [Concomitant]
     Active Substance: METHOTREXATE
     Route: 048
     Dates: end: 20190104
  5. HUMIRA [Suspect]
     Active Substance: ADALIMUMAB
     Indication: UVEITIS
     Route: 058
  6. METHOTREXATE. [Concomitant]
     Active Substance: METHOTREXATE
     Indication: VITREOUS OPACITIES
     Route: 065

REACTIONS (6)
  - Dizziness [Unknown]
  - Visual acuity reduced [Recovering/Resolving]
  - Ocular lymphoma [Unknown]
  - Eye inflammation [Recovering/Resolving]
  - Lymphoma [Not Recovered/Not Resolved]
  - Central nervous system lesion [Unknown]

NARRATIVE: CASE EVENT DATE: 2018
